FAERS Safety Report 4925311-2 (Version None)
Quarter: 2006Q1

REPORT INFORMATION
  Report Type: 
  Country: None (occurrence: None)
  Receive Date: 20060228
  Receipt Date: 20051208
  Transmission Date: 20060701
  Serious: Yes (Life-Threatening, Hospitalization, Disabling)
  Sender: FDA-Public Use
  Company Number: DE-GLAXOSMITHKLINE-D0048212A

PATIENT
  Age: 65 Year
  Sex: Male
  Weight: 77 kg

DRUGS (1)
  1. ZYBAN [Suspect]
     Dosage: 150MG PER DAY
     Route: 048
     Dates: start: 20050111, end: 20050307

REACTIONS (6)
  - ACALCULIA [None]
  - APHASIA [None]
  - CEREBRAL INFARCTION [None]
  - CONVULSION [None]
  - GRAND MAL CONVULSION [None]
  - MEMORY IMPAIRMENT [None]
